FAERS Safety Report 5719269-6 (Version None)
Quarter: 2008Q2

REPORT INFORMATION
  Report Type: 
  Country: None (occurrence: None)
  Receive Date: 20080425
  Receipt Date: 20080425
  Transmission Date: 20081010
  Serious: Yes (Hospitalization)
  Sender: FDA-Public Use
  Company Number: None

PATIENT
  Age: 16 Year
  Sex: Female
  Weight: 56.6996 kg

DRUGS (1)
  1. NEOSPORIN [Suspect]
     Indication: POSTOPERATIVE CARE
     Dosage: SM. AMT. DAILY TOPICAL
     Route: 061
     Dates: start: 20080218, end: 20080409

REACTIONS (8)
  - APPLICATION SITE ERYTHEMA [None]
  - APPLICATION SITE IRRITATION [None]
  - BACTERIAL INFECTION [None]
  - CULTURE WOUND POSITIVE [None]
  - INCISION SITE ABSCESS [None]
  - PAIN IN EXTREMITY [None]
  - SKIN WARM [None]
  - WHITE BLOOD CELL COUNT INCREASED [None]
